FAERS Safety Report 6839897-4 (Version None)
Quarter: 2010Q2

REPORT INFORMATION
  Report Type: 
  Country: None (occurrence: None)
  Receive Date: 20100629
  Receipt Date: 20100412
  Transmission Date: 20101027
  Serious: Yes (Other)
  Sender: FDA-Public Use
  Company Number: US-WYE-H14565510

PATIENT
  Age: 72 Year
  Sex: Female
  Weight: 63.11 kg

DRUGS (6)
  1. PRISTIQ [Suspect]
     Indication: DEPRESSION
     Dosage: 50 MG 1X PER 1 DAY, ORAL
     Route: 048
     Dates: start: 20100409, end: 20100409
  2. NEURONTIN [Concomitant]
  3. ATACAND [Concomitant]
  4. ATIVAN [Concomitant]
  5. SYNTHROID [Concomitant]
  6. HYDROCHLOROTHIAZIDE [Concomitant]

REACTIONS (5)
  - DIARRHOEA [None]
  - EYE PRURITUS [None]
  - HYPERSENSITIVITY [None]
  - OCULAR HYPERAEMIA [None]
  - ORAL PRURITUS [None]
